FAERS Safety Report 7170863-8 (Version None)
Quarter: 2010Q4

REPORT INFORMATION
  Report Type: 
  Country: None (occurrence: None)
  Receive Date: 20101214
  Receipt Date: 20101214
  Transmission Date: 20110411
  Serious: No
  Sender: FDA-Public Use
  Company Number: None

PATIENT
  Sex: Male
  Weight: 99.7913 kg

DRUGS (1)
  1. OXYCONTIN [Suspect]
     Indication: PAIN
     Dosage: 20MG CR 2X A DAY
     Dates: start: 20010101, end: 20100101

REACTIONS (2)
  - DRUG EFFECT DECREASED [None]
  - MALAISE [None]
